FAERS Safety Report 18477108 (Version 2)
Quarter: 2021Q1

REPORT INFORMATION
  Report Type: Spontaneous
  Country: US (occurrence: US)
  Receive Date: 20201107
  Receipt Date: 20210106
  Transmission Date: 20210419
  Serious: Yes (Life-Threatening, Hospitalization)
  Sender: FDA-Public Use
  Company Number: US-TEVA-2020-US-1843985

PATIENT
  Age: 60 Year
  Sex: Female

DRUGS (6)
  1. PROPYLTHIOURACIL. [Suspect]
     Active Substance: PROPYLTHIOURACIL
     Indication: THYROTOXIC CRISIS
     Dosage: 450 MILLIGRAM DAILY;
     Route: 048
  2. PREDNISONE. [Suspect]
     Active Substance: PREDNISONE
     Indication: THYROTOXIC CRISIS
     Dosage: 40 MILLIGRAM DAILY;
     Route: 048
  3. DILTIAZEM. [Suspect]
     Active Substance: DILTIAZEM
     Indication: THYROTOXIC CRISIS
     Dosage: IV DRIP
     Route: 042
  4. ADENOSINE. [Suspect]
     Active Substance: ADENOSINE
     Route: 042
  5. PROPRANOLOL [Suspect]
     Active Substance: PROPRANOLOL HYDROCHLORIDE
     Indication: THYROTOXIC CRISIS
     Dosage: 240 MILLIGRAM DAILY;
     Route: 048
  6. ADENOSINE. [Suspect]
     Active Substance: ADENOSINE
     Indication: THYROTOXIC CRISIS
     Route: 042

REACTIONS (1)
  - Treatment failure [Unknown]
